FAERS Safety Report 13818189 (Version 2)
Quarter: 2018Q1

REPORT INFORMATION
  Report Type: Spontaneous
  Country: US (occurrence: US)
  Receive Date: 20170731
  Receipt Date: 20180109
  Transmission Date: 20180508
  Serious: Yes (Death, Hospitalization, Other)
  Sender: FDA-Public Use
  Company Number: US-ALLERGAN-1731917US

PATIENT
  Age: 2 Day
  Sex: Male
  Weight: 3.5 kg

DRUGS (2)
  1. MORPHINE SULFATE UNK [Suspect]
     Active Substance: MORPHINE SULFATE
     Indication: PAIN OF SKIN
     Route: 065
  2. MORPHINE SULFATE UNK [Suspect]
     Active Substance: MORPHINE SULFATE
     Indication: SEDATIVE THERAPY

REACTIONS (5)
  - Multiple organ dysfunction syndrome [Fatal]
  - Pulmonary hypertension [Fatal]
  - Hypotension [Fatal]
  - Coagulopathy [Fatal]
  - Condition aggravated [Fatal]
